FAERS Safety Report 4870901-9 (Version None)
Quarter: 2006Q1

REPORT INFORMATION
  Report Type: 
  Country: None (occurrence: None)
  Receive Date: 20060103
  Receipt Date: 20051202
  Transmission Date: 20060701
  Serious: Yes (Disabling, Other)
  Sender: FDA-Public Use
  Company Number: AU-SANOFI-SYNTHELABO-A01200508420

PATIENT
  Sex: Male

DRUGS (3)
  1. ELOXATIN [Suspect]
     Route: 042
  2. FLUOROURACIL [Concomitant]
     Dosage: UNKNOWN
     Route: 042
  3. FOLINIC ACID [Concomitant]
     Dosage: UNKNOWN
     Route: 042

REACTIONS (1)
  - TINNITUS [None]
